FAERS Safety Report 21567702 (Version 2)
Quarter: 2022Q4

REPORT INFORMATION
  Report Type: Spontaneous
  Country: DE (occurrence: DE)
  Receive Date: 20221108
  Receipt Date: 20221119
  Transmission Date: 20230112
  Serious: Yes (Other)
  Sender: FDA-Public Use
  Company Number: DE-JNJFOC-20221110869

PATIENT
  Age: 68 Year
  Sex: Male

DRUGS (1)
  1. ERLEADA [Suspect]
     Active Substance: APALUTAMIDE
     Indication: Hormone-dependent prostate cancer
     Route: 048

REACTIONS (3)
  - Penile haemorrhage [Recovered/Resolved]
  - Rash [Recovered/Resolved]
  - Phimosis [Unknown]

NARRATIVE: CASE EVENT DATE: 20221004
